FAERS Safety Report 21407493 (Version 1)
Quarter: 2022Q4

REPORT INFORMATION
  Report Type: Spontaneous
  Country: US (occurrence: US)
  Receive Date: 20221004
  Receipt Date: 20221004
  Transmission Date: 20230113
  Serious: No
  Sender: FDA-Public Use
  Company Number: US-drreddys-SPO/USA/22/0154887

PATIENT
  Age: 23 Year
  Sex: Female

DRUGS (1)
  1. ACCUTANE [Suspect]
     Active Substance: ISOTRETINOIN
     Indication: Product used for unknown indication
     Dosage: RMA ISSUE DATE: 16 MAY 2022, 11:52:03 AM; 16 JUNE 2022, 11:10:54 AM, 18 JULY 2022, 11:26:53 AM;

REACTIONS (2)
  - Adverse drug reaction [Unknown]
  - Hypersensitivity [Unknown]
